FAERS Safety Report 7927979-5 (Version None)
Quarter: 2011Q4

REPORT INFORMATION
  Report Type: 
  Country: None (occurrence: None)
  Receive Date: 20111118
  Receipt Date: 20111114
  Transmission Date: 20120403
  Serious: Yes (Other)
  Sender: FDA-Public Use
  Company Number: US-JNJFOC-20111107320

PATIENT
  Sex: Female

DRUGS (2)
  1. ZYRTEC [Suspect]
     Route: 048
  2. ZYRTEC [Suspect]
     Indication: MULTIPLE ALLERGIES
     Route: 048

REACTIONS (5)
  - NAUSEA [None]
  - UNEVALUABLE EVENT [None]
  - PALPITATIONS [None]
  - PRURITUS [None]
  - WITHDRAWAL SYNDROME [None]
